FAERS Safety Report 7448431 (Version 16)
Quarter: 2013Q1

REPORT INFORMATION
  Report Type: Spontaneous
  Country: CA (occurrence: CA)
  Receive Date: 20100630
  Receipt Date: 20130208
  Transmission Date: 20140127
  Serious: Yes (Other)
  Sender: FDA-Public Use
  Company Number: PHHY2009CA54607

PATIENT
  Age: 69 Year
  Sex: Male

DRUGS (11)
  1. EXJADE [Suspect]
     Indication: MYELODYSPLASTIC SYNDROME
     Dosage: 1750 MG
     Route: 048
     Dates: start: 2009
  2. EXJADE [Suspect]
     Indication: IRON OVERLOAD
     Dosage: 2000 MG, QD
     Route: 048
     Dates: start: 20091111, end: 20110325
  3. EXJADE [Suspect]
     Dosage: 1500 MG, UNK
  4. EXJADE [Suspect]
     Dosage: 1000 MG, QD
     Route: 048
  5. EXJADE [Suspect]
     Dosage: 500 MG, QD
     Route: 048
  6. EXJADE [Suspect]
     Dosage: UNK UKN, UNK
     Route: 048
  7. EXJADE [Suspect]
     Dosage: 2000 MG, UNK
     Route: 048
  8. EXJADE [Suspect]
     Dosage: UNK UKN, UNK
  9. EXJADE [Suspect]
     Dosage: 1750 MG
     Route: 048
  10. REVLIMID [Suspect]
     Indication: MYELODYSPLASTIC SYNDROME
     Dosage: UNK UKN, UNK
     Dates: start: 20100824
  11. TESTOSTERONE [Concomitant]
     Route: 062

REACTIONS (22)
  - Atrial flutter [Recovered/Resolved]
  - Arrhythmia [Unknown]
  - Extrasystoles [Unknown]
  - Heart rate irregular [Unknown]
  - Heart rate increased [Unknown]
  - Infection [Unknown]
  - Abdominal pain [Unknown]
  - Pneumonia bacterial [Recovered/Resolved]
  - Atrial fibrillation [Unknown]
  - Macular degeneration [Unknown]
  - Serum ferritin increased [Recovering/Resolving]
  - Constipation [Unknown]
  - Tooth infection [Unknown]
  - Gastrointestinal motility disorder [Unknown]
  - Flatulence [Unknown]
  - Diarrhoea [Not Recovered/Not Resolved]
  - Abdominal discomfort [Unknown]
  - Abdominal distension [Unknown]
  - Neutrophil count decreased [Unknown]
  - Red blood cell count decreased [Unknown]
  - Renal impairment [Unknown]
  - Blood creatine increased [Unknown]
